FAERS Safety Report 7299675-1 (Version None)
Quarter: 2011Q1

REPORT INFORMATION
  Report Type: 
  Country: None (occurrence: None)
  Receive Date: 20110217
  Receipt Date: 20110208
  Transmission Date: 20110831
  Serious: Yes (Hospitalization)
  Sender: FDA-Public Use
  Company Number: US-ASTRAZENECA-2011SE07340

PATIENT
  Age: 56 Year
  Sex: Female

DRUGS (9)
  1. SEROQUEL [Suspect]
     Indication: ANXIETY
     Route: 048
     Dates: start: 20060101
  2. SEROQUEL [Suspect]
     Indication: MIGRAINE
     Route: 048
     Dates: start: 20060101
  3. AMBIEN CR [Concomitant]
  4. SEROQUEL [Suspect]
     Indication: BIPOLAR DISORDER
     Route: 048
     Dates: start: 20060101
  5. SEROQUEL [Suspect]
     Indication: PANIC ATTACK
     Route: 048
     Dates: start: 20060101
  6. PHENERGAN [Concomitant]
     Indication: NAUSEA
     Dosage: AS NEEDED
  7. SYNTHROID [Concomitant]
  8. ALLEVE [Concomitant]
     Dosage: AS NEEDED
  9. WELLBUTRIN [Concomitant]

REACTIONS (2)
  - SMALL INTESTINAL OBSTRUCTION [None]
  - MIGRAINE [None]
